FAERS Safety Report 7637118 (Version 3)
Quarter: 2018Q3

REPORT INFORMATION
  Report Type: Spontaneous
  Country: IT (occurrence: IT)
  Receive Date: 20101022
  Receipt Date: 20180809
  Transmission Date: 20181010
  Serious: Yes (Life-Threatening, Other)
  Sender: FDA-Public Use
  Company Number: IT-JNJFOC-20101003987

PATIENT
  Age: 39 Year
  Sex: Male

DRUGS (3)
  1. MORPHINE [Suspect]
     Active Substance: MORPHINE
     Indication: PRODUCT USED FOR UNKNOWN INDICATION
     Route: 048
     Dates: start: 20101011, end: 20101013
  2. LYRICA [Suspect]
     Active Substance: PREGABALIN
     Indication: PRODUCT USED FOR UNKNOWN INDICATION
     Route: 065
     Dates: start: 20101011, end: 20101013
  3. DUROGESIC [Suspect]
     Active Substance: FENTANYL
     Indication: PRODUCT USED FOR UNKNOWN INDICATION
     Route: 062
     Dates: start: 20101011, end: 20101013

REACTIONS (7)
  - Medication error [Unknown]
  - Product administered at inappropriate site [Recovered/Resolved]
  - Rhabdomyolysis [Recovering/Resolving]
  - Coma [Unknown]
  - Alanine aminotransferase increased [Unknown]
  - Agitation [Unknown]
  - Overdose [Unknown]

NARRATIVE: CASE EVENT DATE: 20101013
